FAERS Safety Report 16740447 (Version 1)
Quarter: 2019Q3

REPORT INFORMATION
  Report Type: Spontaneous
  Country: CN (occurrence: CN)
  Receive Date: 20190826
  Receipt Date: 20190826
  Transmission Date: 20191005
  Serious: Yes (Death, Hospitalization)
  Sender: FDA-Public Use
  Company Number: CN-PFIZER INC-2019364360

PATIENT
  Sex: Male

DRUGS (1)
  1. SUTENT [Suspect]
     Active Substance: SUNITINIB MALATE

REACTIONS (7)
  - Laboratory test abnormal [Unknown]
  - Renal impairment [Unknown]
  - Neoplasm progression [Unknown]
  - Neutrophil count decreased [Unknown]
  - Cerebral haemorrhage [Unknown]
  - Death [Fatal]
  - Platelet count decreased [Unknown]
